FAERS Safety Report 8063505-0 (Version None)
Quarter: 2012Q1

REPORT INFORMATION
  Report Type: 
  Country: None (occurrence: None)
  Receive Date: 20120118
  Receipt Date: 20120106
  Transmission Date: 20120608
  Serious: Yes (Other)
  Sender: FDA-Public Use
  Company Number: DSA_48839_2012

PATIENT
  Sex: Female

DRUGS (13)
  1. LAMICTAL [Suspect]
     Indication: BIPOLAR II DISORDER
     Dosage: 300 MG, FREQUENCY UNKNOWN ORAL, DF ORAL
     Route: 048
     Dates: start: 20010101
  2. TRILEPTAL [Concomitant]
  3. PRENATAL VITAMINS /01549301/ [Concomitant]
  4. WELLBUTRIN [Suspect]
     Indication: DEPRESSIVE SYMPTOM
     Dosage: DF  ORAL
     Route: 048
     Dates: end: 20050101
  5. NORTRIPTYLINE HCL [Concomitant]
  6. EFFEXOR [Suspect]
     Indication: DEPRESSIVE SYMPTOM
     Dosage: DF
     Dates: end: 20050101
  7. LEXAPRO [Suspect]
     Indication: DEPRESSIVE SYMPTOM
     Dosage: DF
  8. FOLPLEX [Concomitant]
  9. LIPITOR [Concomitant]
  10. LAMOTRIGINE [Suspect]
     Indication: BIPOLAR II DISORDER
     Dosage: 300 MG OR 400 MG A DAY
  11. MICROGESTIN 1/20 [Suspect]
     Indication: CONTRACEPTION
     Dosage: DF
  12. GEODON [Suspect]
     Indication: PRODUCT USED FOR UNKNOWN INDICATION
     Dosage: DF
     Dates: end: 20050101
  13. FISH OIL [Concomitant]

REACTIONS (15)
  - ACTIVITIES OF DAILY LIVING IMPAIRED [None]
  - DEPRESSION [None]
  - DEPRESSED MOOD [None]
  - ABORTION SPONTANEOUS [None]
  - OVERDOSE [None]
  - MOVEMENT DISORDER [None]
  - DRUG INEFFECTIVE [None]
  - MATERNAL EXPOSURE DURING PREGNANCY [None]
  - CONDITION AGGRAVATED [None]
  - HYPERSOMNIA [None]
  - PREGNANCY [None]
  - IMPAIRED WORK ABILITY [None]
  - DISTURBANCE IN ATTENTION [None]
  - DRUG LEVEL DECREASED [None]
  - STRESS AT WORK [None]
